FAERS Safety Report 7545692-3 (Version None)
Quarter: 2011Q2

REPORT INFORMATION
  Report Type: 
  Country: None (occurrence: None)
  Receive Date: 20110613
  Receipt Date: 20110613
  Transmission Date: 20111010
  Serious: Yes (Other)
  Sender: FDA-Public Use
  Company Number: None

PATIENT
  Age: 33 Year
  Sex: Female
  Weight: 56.6996 kg

DRUGS (1)
  1. MIRENA [Suspect]
     Indication: CONTRACEPTION
     Dosage: 20 MCG PER DAY INTRA-UTERINE
     Route: 015
     Dates: start: 20101014, end: 20110607

REACTIONS (5)
  - FATIGUE [None]
  - ANXIETY [None]
  - DEPRESSION [None]
  - BACK PAIN [None]
  - MOOD SWINGS [None]
